FAERS Safety Report 9361070 (Version 1)
Quarter: 2013Q2

REPORT INFORMATION
  Report Type: Spontaneous
  Country: CA (occurrence: CA)
  Receive Date: 20130621
  Receipt Date: 20130621
  Transmission Date: 20140414
  Serious: Yes (Hospitalization)
  Sender: FDA-Public Use
  Company Number: CA-TEVA-414189USA

PATIENT
  Age: 62 Year
  Sex: Female
  Weight: 46 kg

DRUGS (13)
  1. DIVALPROEX SODIUM [Suspect]
     Dosage: 500 MILLIGRAM DAILY;
     Route: 048
  2. LAMOTRIGINE [Suspect]
     Dosage: 200 MILLIGRAM DAILY;
     Route: 048
  3. PRISTIQ [Suspect]
     Dosage: 50 MILLIGRAM DAILY; EXTENDED RELEASE
     Route: 048
  4. PRISTIQ [Suspect]
     Dosage: 100 MILLIGRAM DAILY;
     Route: 048
  5. SAPHRIS [Suspect]
     Dosage: 10 MILLIGRAM DAILY;
     Route: 060
  6. CETIRIZINE [Concomitant]
  7. CLONAZEPAM [Concomitant]
  8. HYDROCORTISONE ACETATE CREAM USP [Concomitant]
  9. LAMOTRIGINE [Concomitant]
  10. LORAZEPAM [Concomitant]
  11. OLANZAPINE [Concomitant]
  12. PREMARIN [Concomitant]
  13. TRAZODONE [Concomitant]

REACTIONS (6)
  - Contusion [Recovered/Resolved]
  - Glossodynia [Recovered/Resolved]
  - Oropharyngeal pain [Recovered/Resolved]
  - Pruritus [Recovered/Resolved]
  - Rash [Recovered/Resolved]
  - Swelling face [Recovered/Resolved]
